FAERS Safety Report 19030480 (Version 1)
Quarter: 2021Q1

REPORT INFORMATION
  Report Type: Spontaneous
  Country: FI (occurrence: FI)
  Receive Date: 20210319
  Receipt Date: 20210319
  Transmission Date: 20210420
  Serious: Yes (Other)
  Sender: FDA-Public Use
  Company Number: FI-TEVA-2021-FI-1890699

PATIENT
  Age: 70 Year
  Sex: Male

DRUGS (1)
  1. DUTASTERIDE/TAMSULOSIN RATIOPHARM [Suspect]
     Active Substance: DUTASTERIDE\TAMSULOSIN
     Route: 065

REACTIONS (4)
  - Urinary retention [Recovered/Resolved]
  - Pollakiuria [Recovered/Resolved]
  - Urine output decreased [Recovered/Resolved]
  - Product substitution issue [Unknown]
